FAERS Safety Report 21233394 (Version 3)
Quarter: 2022Q3

REPORT INFORMATION
  Report Type: Spontaneous
  Country: US (occurrence: US)
  Receive Date: 20220819
  Receipt Date: 20220909
  Transmission Date: 20221026
  Serious: Yes (Hospitalization, Other)
  Sender: FDA-Public Use
  Company Number: US-PFIZER INC-202201067778

PATIENT
  Age: 74 Year
  Sex: Male
  Weight: 74.84 kg

DRUGS (1)
  1. PAXLOVID [Suspect]
     Active Substance: NIRMATRELVIR\RITONAVIR
     Indication: COVID-19 treatment
     Dosage: [PF-07321332300 MG]/[RITONAVIR 100 MG] (150 MG, 100 MG, TOOK ONE DOSE)
     Dates: start: 20220802, end: 20220802

REACTIONS (5)
  - Gastrointestinal haemorrhage [Not Recovered/Not Resolved]
  - Haematochezia [Not Recovered/Not Resolved]
  - Blood pressure decreased [Unknown]
  - Haemoglobin decreased [Unknown]
  - Loss of consciousness [Unknown]

NARRATIVE: CASE EVENT DATE: 20220801
